FAERS Safety Report 7664466-6 (Version None)
Quarter: 2011Q3

REPORT INFORMATION
  Report Type: 
  Country: None (occurrence: None)
  Receive Date: 20110806
  Receipt Date: 20110221
  Transmission Date: 20111222
  Serious: No
  Sender: FDA-Public Use
  Company Number: US-ABBOTT-11P-163-0706569-00

PATIENT
  Sex: Female

DRUGS (1)
  1. NIASPAN [Suspect]
     Indication: PRODUCT USED FOR UNKNOWN INDICATION
     Dates: start: 20110219, end: 20110220

REACTIONS (6)
  - FEELING HOT [None]
  - TENDERNESS [None]
  - ERYTHEMA [None]
  - PARAESTHESIA [None]
  - OEDEMA PERIPHERAL [None]
  - FLUSHING [None]
